FAERS Safety Report 15855502 (Version 1)
Quarter: 2019Q1

REPORT INFORMATION
  Report Type: Spontaneous
  Country: IN (occurrence: IN)
  Receive Date: 20190122
  Receipt Date: 20190122
  Transmission Date: 20190417
  Serious: Yes (Death, Other)
  Sender: FDA-Public Use
  Company Number: IN-FRESENIUS KABI-FK201900635

PATIENT
  Age: 4 Year
  Sex: Female

DRUGS (1)
  1. HEPARIN (MANUFACTURER UNKNOWN) [Suspect]
     Active Substance: HEPARIN SODIUM
     Indication: ANTICOAGULANT THERAPY
     Dosage: UNKNOWN
     Route: 065

REACTIONS (2)
  - Heparin-induced thrombocytopenia [Not Recovered/Not Resolved]
  - Colitis ischaemic [Fatal]
